FAERS Safety Report 18111618 (Version 2)
Quarter: 2020Q4

REPORT INFORMATION
  Report Type: Spontaneous
  Country: JP (occurrence: JP)
  Receive Date: 20200805
  Receipt Date: 20201218
  Transmission Date: 20210113
  Serious: Yes (Death)
  Sender: FDA-Public Use
  Company Number: JP-AMGEN-JPNSP2020124998

PATIENT

DRUGS (1)
  1. ROMIPLATE [Suspect]
     Active Substance: ROMIPLOSTIM
     Indication: APLASTIC ANAEMIA
     Dosage: 4 VIALS, 1X/WEEK
     Route: 058

REACTIONS (1)
  - Death [Fatal]
